FAERS Safety Report 23529376 (Version 1)
Quarter: 2024Q1

REPORT INFORMATION
  Report Type: Spontaneous
  Country: US (occurrence: US)
  Receive Date: 20240216
  Receipt Date: 20240216
  Transmission Date: 20240410
  Serious: No
  Sender: FDA-Public Use
  Company Number: US-TAKEDA-2024TUS013557

PATIENT
  Sex: Female
  Weight: 95.238 kg

DRUGS (3)
  1. VYVANSE [Suspect]
     Active Substance: LISDEXAMFETAMINE DIMESYLATE
     Indication: Depression
     Dosage: 70 MILLIGRAM, QD
     Route: 065
  2. MIRTAZAPINE [Concomitant]
     Active Substance: MIRTAZAPINE
     Dosage: UNK
  3. DESVENLAFAXINE [Concomitant]
     Active Substance: DESVENLAFAXINE
     Dosage: UNK

REACTIONS (5)
  - Product availability issue [Unknown]
  - Impaired quality of life [Unknown]
  - Product dose omission issue [Unknown]
  - Product use issue [Unknown]
  - Product use in unapproved indication [Unknown]
